FAERS Safety Report 25595790 (Version 2)
Quarter: 2025Q3

REPORT INFORMATION
  Report Type: Spontaneous
  Country: US (occurrence: US)
  Receive Date: 20250723
  Receipt Date: 20250731
  Transmission Date: 20251021
  Serious: Yes (Hospitalization)
  Sender: ROCHE
  Company Number: US-ROCHE-10000341667

PATIENT
  Age: 36 Year
  Sex: Female
  Weight: 108.86 kg

DRUGS (8)
  1. RITUXAN [Suspect]
     Active Substance: RITUXIMAB
     Indication: Encephalitis autoimmune
     Route: 042
     Dates: start: 20250221, end: 20250307
  2. PREDNISONE [Suspect]
     Active Substance: PREDNISONE
     Indication: Encephalitis autoimmune
     Route: 048
     Dates: start: 202501, end: 20250615
  3. PREDNISONE [Suspect]
     Active Substance: PREDNISONE
     Indication: Myosclerosis
  4. PREDNISONE [Suspect]
     Active Substance: PREDNISONE
     Indication: Musculoskeletal stiffness
  5. VALIUM [Concomitant]
     Active Substance: DIAZEPAM
     Indication: Musculoskeletal stiffness
     Route: 048
     Dates: start: 2021
  6. VALIUM [Concomitant]
     Active Substance: DIAZEPAM
     Indication: Myosclerosis
     Route: 042
  7. VALIUM [Concomitant]
     Active Substance: DIAZEPAM
     Indication: Muscular weakness
  8. VALIUM [Concomitant]
     Active Substance: DIAZEPAM
     Indication: Arthralgia

REACTIONS (13)
  - Off label use [Unknown]
  - Flushing [Recovered/Resolved]
  - Tremor [Recovered/Resolved]
  - Hyperhidrosis [Recovered/Resolved]
  - Dyspnoea [Recovered/Resolved]
  - Arthralgia [Recovering/Resolving]
  - Musculoskeletal stiffness [Recovering/Resolving]
  - Myosclerosis [Recovering/Resolving]
  - Dystonia [Recovered/Resolved]
  - Fall [Unknown]
  - Muscular weakness [Recovering/Resolving]
  - Infection [Unknown]
  - Myalgia [Unknown]

NARRATIVE: CASE EVENT DATE: 20250221
